FAERS Safety Report 5778428-7 (Version None)
Quarter: 2008Q2

REPORT INFORMATION
  Report Type: 
  Country: None (occurrence: None)
  Receive Date: 20080618
  Receipt Date: 20080618
  Transmission Date: 20081010
  Serious: Yes (Hospitalization)
  Sender: FDA-Public Use
  Company Number: None

PATIENT
  Age: 73 Year
  Sex: Male

DRUGS (1)
  1. CEFTRIAXONE [Suspect]
     Dosage: 1 GM ONCE IV
     Route: 042
     Dates: start: 20080516, end: 20080517

REACTIONS (4)
  - DRUG ERUPTION [None]
  - PRURITUS [None]
  - SCRATCH [None]
  - URTICARIA [None]
